FAERS Safety Report 13672365 (Version 1)
Quarter: 2017Q2

REPORT INFORMATION
  Report Type: Spontaneous
  Country: GB (occurrence: GB)
  Receive Date: 20170621
  Receipt Date: 20170621
  Transmission Date: 20170830
  Serious: Yes (Other)
  Sender: FDA-Public Use
  Company Number: GB-JNJFOC-20170609695

PATIENT
  Sex: Female

DRUGS (3)
  1. REGAINE FOR WOMEN ONCE A DAY SCALP FOAM 5% W/W CUTANEOUS FOAM [Suspect]
     Active Substance: MINOXIDIL
     Indication: ANDROGENETIC ALOPECIA
     Dosage: USED FOR TWO MONTHS AT BEGINNING OF YEAR
     Route: 061
     Dates: start: 2017, end: 2017
  2. REGAINE FOR WOMEN ONCE A DAY SCALP FOAM 5% W/W CUTANEOUS FOAM [Suspect]
     Active Substance: MINOXIDIL
     Indication: ANDROGENETIC ALOPECIA
     Dosage: TWO AND A HALF-THREE MONTHS AGO
     Route: 061
     Dates: start: 2017
  3. AMLODIPINE [Concomitant]
     Active Substance: AMLODIPINE BESYLATE
     Indication: PRODUCT USED FOR UNKNOWN INDICATION
     Dosage: 2 WEEKS AGO
     Route: 065
     Dates: start: 2017

REACTIONS (3)
  - Incorrect drug administration duration [Unknown]
  - Hypertension [Unknown]
  - Head discomfort [Unknown]

NARRATIVE: CASE EVENT DATE: 2017
